FAERS Safety Report 9437211 (Version 2)
Quarter: 2013Q4

REPORT INFORMATION
  Report Type: Report from Study
  Country: BR (occurrence: BR)
  Receive Date: 20130802
  Receipt Date: 20131007
  Transmission Date: 20140711
  Serious: No
  Sender: FDA-Public Use
  Company Number: PHHY2013BR082369

PATIENT
  Sex: Male
  Weight: 106 kg

DRUGS (5)
  1. ACLASTA [Suspect]
     Indication: OSTEOPOROSIS
     Dosage: 5 MG, PER YEAR
     Route: 042
     Dates: start: 201301
  2. ARTROLIVE [Concomitant]
     Indication: RHEUMATIC DISORDER
     Dosage: 2 DF, DAILY
     Route: 048
  3. GARDENAL [Concomitant]
     Indication: HEAD INJURY
     Dosage: 1 DF, DAILY (MORE OR LESS THAN 13 YEAR AGO)
     Route: 048
  4. TOFRANIL [Concomitant]
     Indication: DEPRESSION
     Dosage: 1 DF, DAILY
     Route: 048
  5. FORASEQ [Concomitant]
     Indication: BRONCHITIS
     Dosage: 2 DF, (MORE OR LESS THAN 6 YEAR AGO)

REACTIONS (2)
  - Bronchitis [Recovered/Resolved]
  - Headache [Recovered/Resolved]
